FAERS Safety Report 9400037 (Version 1)
Quarter: 2013Q3

REPORT INFORMATION
  Report Type: Spontaneous
  Country: US (occurrence: US)
  Receive Date: 20130715
  Receipt Date: 20130715
  Transmission Date: 20140515
  Serious: Yes (Other)
  Sender: FDA-Public Use
  Company Number: US-PFIZER INC-2013206453

PATIENT
  Age: 50 Year
  Sex: Female
  Weight: 61.22 kg

DRUGS (4)
  1. EFFEXOR XR [Suspect]
     Indication: PAIN
     Dosage: UNK
     Dates: start: 2005, end: 2010
  2. EFFEXOR XR [Suspect]
     Indication: ANXIETY
  3. OXYCODONE [Concomitant]
     Dosage: UNK
  4. MS CONTIN [Concomitant]
     Dosage: 60 MG, UNK

REACTIONS (3)
  - Arthropathy [Unknown]
  - Soft tissue disorder [Not Recovered/Not Resolved]
  - Herpes zoster [Not Recovered/Not Resolved]
